FAERS Safety Report 15073189 (Version 1)
Quarter: 2018Q2

REPORT INFORMATION
  Report Type: Spontaneous
  Country: TR (occurrence: TR)
  Receive Date: 20180627
  Receipt Date: 20180627
  Transmission Date: 20180711
  Serious: Yes (Hospitalization)
  Sender: FDA-Public Use
  Company Number: TR-TEVA-2018-TR-915575

PATIENT
  Age: 2 Year
  Sex: Female
  Weight: 12 kg

DRUGS (1)
  1. TEVAGRASTIM [Suspect]
     Active Substance: FILGRASTIM
     Dosage: 1.2 MU DAILY; TEVAGRASTIM 30 MIU/0.5 ML
     Route: 042
     Dates: start: 20180525

REACTIONS (1)
  - Drug ineffective [Not Recovered/Not Resolved]

NARRATIVE: CASE EVENT DATE: 20180525
